FAERS Safety Report 21547825 (Version 2)
Quarter: 2022Q4

REPORT INFORMATION
  Report Type: Spontaneous
  Country: US (occurrence: US)
  Receive Date: 20221103
  Receipt Date: 20221117
  Transmission Date: 20230112
  Serious: Yes (Other)
  Sender: FDA-Public Use
  Company Number: US-VERTEX PHARMACEUTICALS-2022-016377

PATIENT
  Age: 21 Year
  Sex: Female

DRUGS (3)
  1. TRIKAFTA [Suspect]
     Active Substance: ELEXACAFTOR\IVACAFTOR\TEZACAFTOR
     Indication: Cystic fibrosis
     Dosage: ONE ORANGE TABLET DAILY
     Route: 048
     Dates: start: 20191230, end: 202001
  2. TRIKAFTA [Suspect]
     Active Substance: ELEXACAFTOR\IVACAFTOR\TEZACAFTOR
     Dosage: TWO ORANGE TABLETS DAILY
     Route: 048
     Dates: start: 20200127, end: 20220510
  3. TRIKAFTA [Suspect]
     Active Substance: ELEXACAFTOR\IVACAFTOR\TEZACAFTOR
     Dosage: ONE ORANGE PILL ON DAY 1, 2 ORANGE PILLS ON DAY 2; ALTERNATE EVERY OTHER DAY
     Route: 048
     Dates: start: 20220510, end: 20220930

REACTIONS (8)
  - Transaminases increased [Unknown]
  - Blood bilirubin increased [Not Recovered/Not Resolved]
  - Papillary thyroid cancer [Not Recovered/Not Resolved]
  - Metastases to lymph nodes [Not Recovered/Not Resolved]
  - Child-Pugh-Turcotte score abnormal [Unknown]
  - Bilirubin conjugated abnormal [Not Recovered/Not Resolved]
  - Liver transplant rejection [Not Recovered/Not Resolved]
  - Oedema peripheral [Unknown]

NARRATIVE: CASE EVENT DATE: 20220101
